FAERS Safety Report 5245739-3 (Version None)
Quarter: 2007Q1

REPORT INFORMATION
  Report Type: 
  Country: None (occurrence: None)
  Receive Date: 20070223
  Receipt Date: 20070219
  Transmission Date: 20070707
  Serious: Yes (Hospitalization)
  Sender: FDA-Public Use
  Company Number: JP-MERCK-0702USA03744

PATIENT
  Age: 22 Year
  Sex: Male

DRUGS (1)
  1. PEPCID RPD [Suspect]
     Indication: ABDOMINAL PAIN UPPER
     Route: 048
     Dates: start: 20070129, end: 20070205

REACTIONS (2)
  - HYPERURICAEMIA [None]
  - RENAL FAILURE ACUTE [None]
